FAERS Safety Report 8945268 (Version 1)
Quarter: 2012Q4

REPORT INFORMATION
  Report Type: 
  Country: CH (occurrence: CH)
  Receive Date: 20121205
  Receipt Date: 20121205
  Transmission Date: 20130627
  Serious: Yes (Other)
  Sender: FDA-Public Use
  Company Number: PHHY2012CH108444

PATIENT
  Age: 38 Year
  Sex: Female

DRUGS (8)
  1. OLANZAPINE [Suspect]
     Route: 048
     Dates: start: 20111223, end: 20111228
  2. HALDOL [Suspect]
     Dosage: 2 mg, QD
     Route: 048
     Dates: start: 20111229, end: 20120103
  3. HALDOL [Suspect]
     Dosage: 3 mg, QD
     Route: 048
     Dates: start: 20120103
  4. LORAZEPAM [Suspect]
     Dosage: 1 mg, Q8H, as needed
     Route: 048
     Dates: start: 201201
  5. NICOTINELL TTS 10 [Suspect]
     Dates: start: 201201
  6. ENTUMINE [Suspect]
     Dosage: 200 mg, UNK
     Route: 048
     Dates: start: 20111228, end: 20111229
  7. ABILIFY [Suspect]
     Route: 048
     Dates: start: 201107, end: 201208
  8. LAMICTAL [Suspect]
     Dosage: 2 DF, UNK
     Route: 048
     Dates: start: 201107, end: 201208

REACTIONS (11)
  - Self injurious behaviour [Unknown]
  - Suicide attempt [Unknown]
  - Anxiety [Unknown]
  - Insomnia [Unknown]
  - Tension [Unknown]
  - Homicidal ideation [Unknown]
  - Maternal exposure during pregnancy [Recovered/Resolved]
  - Normal newborn [Unknown]
  - Stab wound [None]
  - Fall [None]
  - Caesarean section [None]
